FAERS Safety Report 9472653 (Version 1)
Quarter: 2013Q3

REPORT INFORMATION
  Report Type: Spontaneous
  Country: US (occurrence: None)
  Receive Date: 20130821
  Receipt Date: 20130821
  Transmission Date: 20140515
  Serious: Yes (Hospitalization)
  Sender: FDA-Public Use
  Company Number: None

PATIENT
  Age: 69 Year
  Sex: Male
  Weight: 60.6 kg

DRUGS (2)
  1. HYDROMORPHONE [Suspect]
     Indication: PAIN
     Route: 042
     Dates: start: 20130718, end: 20130719
  2. MORPHINE [Suspect]
     Indication: PAIN
     Route: 042
     Dates: start: 20130718, end: 20130719

REACTIONS (11)
  - Pancreatitis [None]
  - Disease recurrence [None]
  - Respiratory failure [None]
  - Oxygen saturation decreased [None]
  - Somnolence [None]
  - Hypercapnia [None]
  - Wheezing [None]
  - Cough [None]
  - Sedation [None]
  - Respiratory depression [None]
  - Drug abuse [None]
